FAERS Safety Report 5737261-2 (Version None)
Quarter: 2008Q2

REPORT INFORMATION
  Report Type: 
  Country: None (occurrence: None)
  Receive Date: 20080512
  Receipt Date: 20080512
  Transmission Date: 20081010
  Serious: No
  Sender: FDA-Public Use
  Company Number: None

PATIENT
  Age: 64 Year
  Sex: Male

DRUGS (14)
  1. DIGITEK 0.25MG AMIDE-BERTEK- [Suspect]
     Dosage: 0.25MG DAILY PO
     Route: 048
     Dates: start: 20080401, end: 20080506
  2. INSULIN [Concomitant]
  3. ABILIFY [Concomitant]
  4. SEREVENT [Concomitant]
  5. PREVACID [Concomitant]
  6. LEXAPRO [Concomitant]
  7. EFFEXOR [Concomitant]
  8. SPIRIVA [Concomitant]
  9. COUMADIN [Concomitant]
  10. AMBIEN [Concomitant]
  11. LYRICA [Concomitant]
  12. LASIX [Concomitant]
  13. COUREG [Concomitant]
  14. MAGNESIUM [Concomitant]

REACTIONS (3)
  - ABDOMINAL PAIN [None]
  - HYPOTENSION [None]
  - URINARY TRACT INFECTION [None]
